FAERS Safety Report 8024041-0 (Version None)
Quarter: 2012Q1

REPORT INFORMATION
  Report Type: 
  Country: None (occurrence: None)
  Receive Date: 20120105
  Receipt Date: 20111228
  Transmission Date: 20120608
  Serious: Yes (Other)
  Sender: FDA-Public Use
  Company Number: JP-BRISTOL-MYERS SQUIBB COMPANY-16326522

PATIENT
  Age: 44 Year
  Sex: Female

DRUGS (3)
  1. MAGMITT [Concomitant]
     Route: 048
  2. METFORMIN HCL [Suspect]
     Indication: DIABETES MELLITUS
     Dosage: 750MG 10NOV-15NOV11 (5DAYS)
     Route: 048
     Dates: start: 20111107, end: 20111110
  3. FAMOTIDINE [Suspect]
     Dates: start: 20111020, end: 20111115

REACTIONS (2)
  - NEUTROPHIL PERCENTAGE DECREASED [None]
  - WHITE BLOOD CELL COUNT DECREASED [None]
